FAERS Safety Report 6735270-8 (Version None)
Quarter: 2010Q2

REPORT INFORMATION
  Report Type: 
  Country: None (occurrence: None)
  Receive Date: 20100514
  Receipt Date: 20090416
  Transmission Date: 20101027
  Serious: Yes (Other)
  Sender: FDA-Public Use
  Company Number: WAES 0904USA02724

PATIENT
  Sex: Female

DRUGS (1)
  1. HYDRODIURIL [Suspect]
     Dosage: PO

REACTIONS (1)
  - BLOOD POTASSIUM DECREASED [None]
